FAERS Safety Report 5145674-5 (Version None)
Quarter: 2006Q4

REPORT INFORMATION
  Report Type: 
  Country: None (occurrence: None)
  Receive Date: 20061025
  Receipt Date: 20061010
  Transmission Date: 20070319
  Serious: Yes (Other)
  Sender: FDA-Public Use
  Company Number: 200610269BBE

PATIENT
  Age: 36 Year
  Sex: Male

DRUGS (1)
  1. KOGENATE [Suspect]
     Indication: FACTOR VIII DEFICIENCY

REACTIONS (4)
  - ANTIBODY TEST POSITIVE [None]
  - FACTOR VIII INHIBITION [None]
  - FALSE POSITIVE LABORATORY RESULT [None]
  - HUMAN ANTI-MOUSE ANTIBODY POSITIVE [None]
